FAERS Safety Report 15180347 (Version 1)
Quarter: 2018Q3

REPORT INFORMATION
  Report Type: Spontaneous
  Country: US (occurrence: US)
  Receive Date: 20180623
  Receipt Date: 20180623
  Transmission Date: 20181010
  Serious: Yes (Hospitalization)
  Sender: FDA-Public Use
  Company Number: None

PATIENT
  Age: 33 Year
  Sex: Male
  Weight: 67.5 kg

DRUGS (6)
  1. ESOMEPRAZOLE MGAN [Concomitant]
     Active Substance: ESOMEPRAZOLE MAGNESIUM
  2. MONTELUKAST [Concomitant]
     Active Substance: MONTELUKAST SODIUM
  3. ALBUTEROL INHAILER [Concomitant]
  4. ONE A DAY MEN^S HEALTH [Concomitant]
     Active Substance: VITAMINS
  5. TRUE BIOTICS [Concomitant]
  6. CIPROFLOXACIN. [Suspect]
     Active Substance: CIPROFLOXACIN
     Indication: URINARY TRACT INFECTION
     Dosage: ?          QUANTITY:20 TABLET(S);?
     Route: 048
     Dates: start: 20180611, end: 20180614

REACTIONS (4)
  - Pain in extremity [None]
  - Nerve injury [None]
  - Abdominal pain lower [None]
  - Chest pain [None]

NARRATIVE: CASE EVENT DATE: 20180613
